FAERS Safety Report 15785464 (Version 1)
Quarter: 2019Q1

REPORT INFORMATION
  Report Type: Spontaneous
  Country: US (occurrence: US)
  Receive Date: 20190101
  Receipt Date: 20190101
  Transmission Date: 20190417
  Serious: Yes (Life-Threatening, Disabling, Other)
  Sender: FDA-Public Use
  Company Number: None

PATIENT
  Age: 61 Year
  Sex: Male
  Weight: 85.5 kg

DRUGS (9)
  1. TR NIACIN [Concomitant]
  2. FISH OIL [Concomitant]
     Active Substance: FISH OIL
  3. GABAPENTIN. [Concomitant]
     Active Substance: GABAPENTIN
  4. LYSINE [Concomitant]
     Active Substance: LYSINE
  5. VITAMIN D [Concomitant]
     Active Substance: CHOLECALCIFEROL
  6. CALCIUM [Concomitant]
     Active Substance: CALCIUM
  7. TYLENOL EXTRA STRENGTH [Concomitant]
     Active Substance: ACETAMINOPHEN
  8. MAGNESIUM [Concomitant]
     Active Substance: MAGNESIUM
  9. ROPINIROLE HCL [Suspect]
     Active Substance: ROPINIROLE HYDROCHLORIDE
     Indication: RESTLESS LEGS SYNDROME
     Dosage: ?          QUANTITY:1 TABLET(S);OTHER FREQUENCY:1 - 2 AT BEDTIME;?
     Route: 048
     Dates: start: 20181205, end: 20181230

REACTIONS (4)
  - Oxygen saturation decreased [None]
  - Dyspnoea [None]
  - Anxiety [None]
  - Stress [None]

NARRATIVE: CASE EVENT DATE: 20181224
